FAERS Safety Report 8222568-X (Version None)
Quarter: 2012Q1

REPORT INFORMATION
  Report Type: 
  Country: None (occurrence: None)
  Receive Date: 20120320
  Receipt Date: 20120312
  Transmission Date: 20120608
  Serious: Yes (Other)
  Sender: FDA-Public Use
  Company Number: US-ABBOTT-12P-163-0914561-00

PATIENT
  Age: 64 Year
  Sex: Male

DRUGS (1)
  1. HUMIRA [Suspect]
     Indication: CROHN'S DISEASE
     Dosage: INTERRUPTED
     Dates: start: 20120112, end: 20120226

REACTIONS (5)
  - CYST [None]
  - MILIA [None]
  - PAIN [None]
  - STAPHYLOCOCCAL INFECTION [None]
  - IMPAIRED HEALING [None]
